FAERS Safety Report 19098952 (Version 1)
Quarter: 2021Q2

REPORT INFORMATION
  Report Type: Spontaneous
  Country: FR (occurrence: FR)
  Receive Date: 20210406
  Receipt Date: 20210406
  Transmission Date: 20210717
  Serious: Yes (Hospitalization, Other)
  Sender: FDA-Public Use
  Company Number: FR-GILEAD-2021-0524074

PATIENT
  Age: 62 Year
  Sex: Male
  Weight: 120 kg

DRUGS (11)
  1. PARACETAMOL ACTAVIS [Concomitant]
     Active Substance: ACETAMINOPHEN
  2. SPECIAFOLDINE [Concomitant]
     Active Substance: FOLIC ACID
  3. CYCLOPHOSPHAMIDE SANDOZ [Suspect]
     Active Substance: CYCLOPHOSPHAMIDE
     Indication: BONE MARROW CONDITIONING REGIMEN
     Dosage: 1000 MG, QD
     Route: 041
     Dates: start: 20201113, end: 20201115
  4. VALACICLOVIR [Concomitant]
     Active Substance: VALACYCLOVIR HYDROCHLORIDE
     Dosage: .
  5. ELIQUIS [Concomitant]
     Active Substance: APIXABAN
  6. ATORVASTATINE [ATORVASTATIN] [Concomitant]
     Active Substance: ATORVASTATIN
     Dosage: .
  7. FLUDARABINE TEVA [Suspect]
     Active Substance: FLUDARABINE PHOSPHATE
     Indication: BONE MARROW CONDITIONING REGIMEN
     Dosage: 60 MG, QD
     Route: 041
     Dates: start: 20201113, end: 20201115
  8. KARDEGIC [Concomitant]
     Active Substance: ASPIRIN DL-LYSINE
     Dosage: .
  9. VERAPAMIL CLORHIDRAT [Concomitant]
     Dosage: .
  10. BACTRIM [Concomitant]
     Active Substance: SULFAMETHOXAZOLE\TRIMETHOPRIM
  11. YESCARTA [Suspect]
     Active Substance: AXICABTAGENE CILOLEUCEL
     Indication: DIFFUSE LARGE B-CELL LYMPHOMA STAGE I
     Dosage: 200 MILLION IU, ONCE
     Route: 041
     Dates: start: 20201118, end: 20201118

REACTIONS (2)
  - Cytokine release syndrome [Recovered/Resolved]
  - Pancytopenia [Recovering/Resolving]

NARRATIVE: CASE EVENT DATE: 20201119
